FAERS Safety Report 25161711 (Version 1)
Quarter: 2025Q2

REPORT INFORMATION
  Report Type: Spontaneous
  Country: US (occurrence: None)
  Receive Date: 20250404
  Receipt Date: 20250404
  Transmission Date: 20250717
  Serious: Yes (Other)
  Sender: FDA-CTU
  Company Number: None

PATIENT
  Sex: Female

DRUGS (7)
  1. LENALIDOMIDE [Suspect]
     Active Substance: LENALIDOMIDE
     Indication: Plasma cell myeloma in remission
     Dosage: FREQUENCY : DAILY;?
     Route: 038
     Dates: start: 20250307
  2. DEXAMETHASON TAB 1MG [Concomitant]
  3. HYDROCHLOROT CAP 12.5MG [Concomitant]
  4. KP VITAMIN D [Concomitant]
  5. LOSARTAN POTASSIUM [Concomitant]
     Active Substance: LOSARTAN POTASSIUM
  6. POT CHLORIDE TAB 20MEQ ER [Concomitant]
  7. PRESERVISION CAP AR EDS 2 [Concomitant]

REACTIONS (2)
  - Cancer surgery [None]
  - Therapy interrupted [None]
